FAERS Safety Report 8202826-5 (Version None)
Quarter: 2012Q1

REPORT INFORMATION
  Report Type: 
  Country: None (occurrence: None)
  Receive Date: 20120312
  Receipt Date: 20120312
  Transmission Date: 20120608
  Serious: No
  Sender: FDA-Public Use
  Company Number: None

PATIENT
  Age: 57 Year
  Sex: Female
  Weight: 81.646 kg

DRUGS (2)
  1. BOTOX [Suspect]
     Indication: MIGRAINE
     Dosage: 150
     Route: 023
     Dates: start: 20110401, end: 20121016
  2. BOTOX [Concomitant]
     Dosage: 150
     Route: 023
     Dates: start: 20110401, end: 20121016

REACTIONS (5)
  - INFLUENZA LIKE ILLNESS [None]
  - ASTHENOPIA [None]
  - FATIGUE [None]
  - PAIN IN EXTREMITY [None]
  - INSOMNIA [None]
